FAERS Safety Report 5872951-2 (Version None)
Quarter: 2008Q3

REPORT INFORMATION
  Report Type: 
  Country: None (occurrence: None)
  Receive Date: 20080905
  Receipt Date: 20080825
  Transmission Date: 20090109
  Serious: Yes (Other)
  Sender: FDA-Public Use
  Company Number: US-PFIZER INC-2008071262

PATIENT
  Sex: Female
  Weight: 72.1 kg

DRUGS (8)
  1. LYRICA [Suspect]
     Indication: MUSCLE SPASMS
     Route: 048
  2. LYRICA [Suspect]
     Indication: MUSCLE TIGHTNESS
  3. CYMBALTA [Concomitant]
  4. DARVOCET [Concomitant]
  5. LIPITOR [Concomitant]
  6. ZETIA [Concomitant]
  7. LOTREL [Concomitant]
  8. ALPRAZOLAM [Concomitant]

REACTIONS (6)
  - CHEST DISCOMFORT [None]
  - CONSTIPATION [None]
  - CONVULSION [None]
  - MUSCULOSKELETAL CHEST PAIN [None]
  - URINE FLOW DECREASED [None]
  - WEIGHT INCREASED [None]
